FAERS Safety Report 5095967-5 (Version None)
Quarter: 2006Q3

REPORT INFORMATION
  Report Type: 
  Country: None (occurrence: None)
  Receive Date: 20060905
  Receipt Date: 20060830
  Transmission Date: 20061208
  Serious: Yes (Other)
  Sender: FDA-Public Use
  Company Number: 2006AP04075

PATIENT
  Age: 70 Year
  Sex: Male

DRUGS (8)
  1. CASODEX [Suspect]
     Indication: PROSTATE CANCER
     Route: 048
  2. LEUPLIN [Suspect]
     Indication: PROSTATE CANCER
  3. AMARYL [Concomitant]
     Indication: DIABETES MELLITUS
  4. GLUCOBAY [Concomitant]
     Indication: DIABETES MELLITUS
  5. CALCIUM ANTAGONIST [Concomitant]
  6. ACE INHIBITOR [Concomitant]
  7. H2 BLOCKER [Concomitant]
  8. 8-HOUR BAYER [Concomitant]

REACTIONS (3)
  - CONDITION AGGRAVATED [None]
  - DIABETES MELLITUS [None]
  - GLYCOSYLATED HAEMOGLOBIN INCREASED [None]
